FAERS Safety Report 9205261 (Version 1)
Quarter: 2013Q2

REPORT INFORMATION
  Report Type: Spontaneous
  Country: CN (occurrence: CN)
  Receive Date: 20130402
  Receipt Date: 20130402
  Transmission Date: 20140414
  Serious: Yes (Hospitalization)
  Sender: FDA-Public Use
  Company Number: CN-MYLANLABS-2013S1006632

PATIENT
  Age: 29 Year
  Sex: Female
  Weight: 73 kg

DRUGS (10)
  1. FUROSEMIDE [Suspect]
     Indication: HYPERMAGNESAEMIA
     Dosage: 10MG
     Route: 065
  2. CALCIUM GLUCONATE [Concomitant]
     Indication: HYPERMAGNESAEMIA
     Route: 065
  3. PROPOFOL [Concomitant]
     Indication: SEDATION
     Dosage: SMALL DOSE
     Route: 065
  4. TRAMADOL [Concomitant]
     Indication: ANALGESIC THERAPY
     Dosage: SMALL DOSE
     Route: 065
  5. REMIFENTANIL [Concomitant]
     Indication: GENERAL ANAESTHESIA
     Dosage: 50 MICROG
     Route: 065
  6. PROPOFOL [Concomitant]
     Indication: GENERAL ANAESTHESIA
     Dosage: 100MG
     Route: 065
  7. ROCURONIUM BROMIDE [Concomitant]
     Indication: GENERAL ANAESTHESIA
     Dosage: 40MG
     Route: 065
  8. ISOFLURANE [Concomitant]
     Indication: GENERAL ANAESTHESIA
     Dosage: 1.5%-2% IN OXYGEN 2 L/MINUTE
     Route: 065
  9. SUFENTANIL [Concomitant]
     Dosage: 15 MICROG
     Route: 042
  10. RINGER^S LACTATE [Concomitant]
     Dosage: 800ML
     Route: 065

REACTIONS (2)
  - Metabolic acidosis [Recovering/Resolving]
  - Respiratory acidosis [Recovering/Resolving]
